FAERS Safety Report 8216520-8 (Version None)
Quarter: 2012Q1

REPORT INFORMATION
  Report Type: 
  Country: None (occurrence: None)
  Receive Date: 20120316
  Receipt Date: 20120312
  Transmission Date: 20120608
  Serious: Yes (Other)
  Sender: FDA-Public Use
  Company Number: US-ABBOTT-11P-163-0868089-00

PATIENT
  Sex: Female
  Weight: 63.56 kg

DRUGS (15)
  1. TOPROL-XL [Concomitant]
     Indication: CORONARY ARTERY DISEASE
  2. VITAMIN B-12 [Concomitant]
     Indication: PRODUCT USED FOR UNKNOWN INDICATION
  3. LANTUS [Concomitant]
     Indication: PRODUCT USED FOR UNKNOWN INDICATION
     Dosage: HS
  4. GLUCOPHAGE [Concomitant]
     Indication: DIABETES MELLITUS
     Dosage: 2-TABS 500MG EVERY DAY
  5. TEMAZEPAM [Concomitant]
     Indication: PRODUCT USED FOR UNKNOWN INDICATION
  6. FROVA [Concomitant]
     Indication: PRODUCT USED FOR UNKNOWN INDICATION
  7. SYNTHROID [Concomitant]
     Indication: PRODUCT USED FOR UNKNOWN INDICATION
  8. ELAVIL [Concomitant]
     Indication: ANXIETY
     Dosage: AT NIGHT
  9. ASPIRIN [Concomitant]
     Indication: CARDIAC DISORDER
  10. HUMIRA [Suspect]
     Indication: CROHN'S DISEASE
     Route: 058
     Dates: start: 20110601
  11. FOLIC ACID [Concomitant]
     Indication: PRODUCT USED FOR UNKNOWN INDICATION
  12. HUMALOG [Concomitant]
     Indication: PRODUCT USED FOR UNKNOWN INDICATION
     Dosage: SLIDING SCALE
  13. OMEPRAZOLE [Concomitant]
     Indication: PRODUCT USED FOR UNKNOWN INDICATION
  14. REQUIP [Concomitant]
     Indication: RESTLESS LEGS SYNDROME
  15. DOMPERIDONE [Concomitant]
     Indication: IMPAIRED GASTRIC EMPTYING

REACTIONS (6)
  - TRIGGER FINGER [None]
  - CHEST DISCOMFORT [None]
  - CHILLS [None]
  - OROPHARYNGEAL PAIN [None]
  - COUGH [None]
  - UPPER RESPIRATORY TRACT INFECTION [None]
